FAERS Safety Report 19864739 (Version 1)
Quarter: 2021Q3

REPORT INFORMATION
  Report Type: Spontaneous
  Country: RU (occurrence: RU)
  Receive Date: 20210922
  Receipt Date: 20210922
  Transmission Date: 20211014
  Serious: Yes (Other)
  Sender: FDA-Public Use
  Company Number: RU-BEH-2021136013

PATIENT
  Age: 35 Year
  Sex: Male

DRUGS (2)
  1. HAEMATE P [Suspect]
     Active Substance: ANTIHEMOPHILIC FACTOR HUMAN
     Indication: VON WILLEBRAND^S DISEASE
     Dosage: 30 INTERNATIONAL UNIT/KILOGRAM (1000+2400 IU), PRN
     Route: 042
     Dates: start: 2021, end: 2021
  2. HAEMATE P [Suspect]
     Active Substance: ANTIHEMOPHILIC FACTOR HUMAN
     Indication: VON WILLEBRAND^S DISEASE
     Dosage: 30 INTERNATIONAL UNIT/KILOGRAM (1000+2400 IU), PRN
     Route: 042
     Dates: start: 2021, end: 2021

REACTIONS (4)
  - Drug ineffective [Recovered/Resolved]
  - Headache [Recovered/Resolved]
  - Asthenia [Recovered/Resolved]
  - Heart rate increased [Recovered/Resolved]
